FAERS Safety Report 6435162-8 (Version None)
Quarter: 2009Q4

REPORT INFORMATION
  Report Type: 
  Country: None (occurrence: None)
  Receive Date: 20091110
  Receipt Date: 20090928
  Transmission Date: 20100525
  Serious: No
  Sender: FDA-Public Use
  Company Number: US-BRISTOL-MYERS SQUIBB COMPANY-14787345

PATIENT
  Age: 56 Year
  Sex: Female

DRUGS (6)
  1. IXEMPRA KIT [Suspect]
     Indication: BREAST CANCER METASTATIC
     Dosage: REOCCURED 2002;8H015C/0000036867 EXP 31AUG2010 15MG KIT;9A018A/0000035374 EXP 31JN11 45MG;3HR INF
     Route: 042
     Dates: start: 20090916
  2. DECADRON [Concomitant]
     Indication: PREMEDICATION
     Route: 042
  3. CIMETIDINE [Concomitant]
     Indication: PREMEDICATION
     Route: 042
  4. CLARITIN [Concomitant]
     Indication: PREMEDICATION
  5. BENADRYL [Concomitant]
     Indication: PREMEDICATION
     Route: 048
  6. ZOFRAN [Concomitant]
     Indication: PREMEDICATION
     Route: 042

REACTIONS (4)
  - ALANINE AMINOTRANSFERASE INCREASED [None]
  - ASPARTATE AMINOTRANSFERASE INCREASED [None]
  - ASTHENIA [None]
  - FEELING DRUNK [None]
